FAERS Safety Report 10387960 (Version 8)
Quarter: 2018Q2

REPORT INFORMATION
  Report Type: Spontaneous
  Country: BR (occurrence: BR)
  Receive Date: 20140815
  Receipt Date: 20180504
  Transmission Date: 20180711
  Serious: Yes (Life-Threatening, Hospitalization, Other)
  Sender: FDA-Public Use
  Company Number: BR-AMGEN-BRASP2014061845

PATIENT
  Age: 77 Year
  Sex: Female

DRUGS (5)
  1. ENBREL [Suspect]
     Active Substance: ETANERCEPT
     Indication: PSORIASIS
     Dosage: 50 MG, QWK
     Route: 065
     Dates: start: 2014
  2. ENBREL [Suspect]
     Active Substance: ETANERCEPT
     Indication: PSORIASIS
  3. ENBREL [Suspect]
     Active Substance: ETANERCEPT
     Indication: PSORIATIC ARTHROPATHY
     Dosage: 50 MG, QWK
     Route: 065
     Dates: start: 2013, end: 2014
  4. LOSARTAN. [Concomitant]
     Active Substance: LOSARTAN
     Dosage: UNK
     Dates: start: 2010
  5. CARBAMAZEPINE. [Concomitant]
     Active Substance: CARBAMAZEPINE
     Indication: TRIGEMINAL NERVE DISORDER
     Dosage: UNK
     Dates: start: 2010

REACTIONS (31)
  - Rash pustular [Recovered/Resolved]
  - Pruritus generalised [Recovered/Resolved]
  - Pain in extremity [Recovered/Resolved]
  - Jaw disorder [Recovered/Resolved]
  - Paraesthesia [Recovered/Resolved]
  - Lung neoplasm malignant [Unknown]
  - Arthralgia [Recovered/Resolved]
  - Oral pain [Recovered/Resolved]
  - Nail disorder [Recovered/Resolved]
  - Back pain [Recovered/Resolved]
  - Gait inability [Unknown]
  - Dyspnoea [Recovered/Resolved]
  - Finger deformity [Recovered/Resolved]
  - Sensory disturbance [Recovered/Resolved]
  - Pulmonary pain [Recovered/Resolved]
  - Neuritis [Recovered/Resolved]
  - Suicidal ideation [Recovered/Resolved]
  - Lung disorder [Unknown]
  - Condition aggravated [Recovered/Resolved]
  - Dysentery [Recovered/Resolved]
  - Crying [Recovered/Resolved]
  - Dehydration [Recovered/Resolved]
  - Loss of personal independence in daily activities [Recovered/Resolved]
  - Pain [Recovered/Resolved]
  - Psoriasis [Recovered/Resolved]
  - Fall [Recovered/Resolved]
  - Skin burning sensation [Recovered/Resolved]
  - Nervousness [Recovered/Resolved]
  - Wound [Recovered/Resolved]
  - Aphasia [Recovered/Resolved]
  - Osteoporosis [Recovered/Resolved]

NARRATIVE: CASE EVENT DATE: 2014
